FAERS Safety Report 6399660-8 (Version None)
Quarter: 2009Q4

REPORT INFORMATION
  Report Type: 
  Country: None (occurrence: None)
  Receive Date: 20091014
  Receipt Date: 20091005
  Transmission Date: 20100525
  Serious: Yes (Hospitalization, Other)
  Sender: FDA-Public Use
  Company Number: US-ROCHE-657063

PATIENT
  Sex: Female
  Weight: 99.8 kg

DRUGS (12)
  1. BONIVA [Suspect]
     Indication: OSTEOPOROSIS
     Dosage: INDICATION: POSTMENOPAUSAL OSTEOPOROSIS
     Route: 048
     Dates: start: 20090615, end: 20090715
  2. MULTIVITAMIN NOS [Concomitant]
     Dosage: DAILY
     Route: 048
  3. CALCIUM CORAL + VITAMIN D [Concomitant]
     Dosage: DAILY: DRUG REPORTED: CALCIUM + D
     Route: 048
  4. GLUCOSAMINE COMPLEX [Concomitant]
     Dosage: DRUG REPORTED: GLUCOSAMINE CHONDROITIN COMPLX
     Route: 048
  5. FISH OIL [Concomitant]
     Dosage: DRUG REPORTED: FISH OIL 1000 MG
  6. NITROGLYCERIN [Concomitant]
     Indication: CHEST PAIN
     Dosage: 1 TAB EVERY 5MIN AS NEEDED, UPTO 3 PER EPISODE;DISPENSE: 60 TABLETS
     Route: 060
  7. METFORMIN HYDROCHLORIDE [Concomitant]
     Dosage: DRUG: METFORMIN HCL; 1 TAB TWICE DAILY WITH FOOD;DISPENSE:180 TABS; REFILL: 3
     Route: 048
  8. LEVOTHROID [Concomitant]
     Dosage: DAILY; DISPENSE: 90 TSB, REFILL:3
     Route: 048
  9. HYDROCORTISONE [Concomitant]
     Dosage: APPLY SPARINGLY TO AFFECTED AREAS;DISPENSE: 60G, REFILL:3
  10. IRON [Concomitant]
     Dosage: I TABLET EVERY OTHER DAILY
     Route: 048
  11. TYLENOL (CAPLET) [Concomitant]
     Dosage: DRUG REPORTED: TYLENOL/CODEINE #3 300-30 MG;1 TABLET DAILY AS NEEDED;DISPENSE: 30
     Route: 048
  12. ASPIRIN [Concomitant]
     Route: 048

REACTIONS (4)
  - CHEST PAIN [None]
  - HEART RATE INCREASED [None]
  - ROAD TRAFFIC ACCIDENT [None]
  - TEMPERATURE INTOLERANCE [None]
